FAERS Safety Report 8380637-8 (Version None)
Quarter: 2012Q2

REPORT INFORMATION
  Report Type: 
  Country: None (occurrence: None)
  Receive Date: 20120515
  Receipt Date: 20120503
  Transmission Date: 20120825
  Serious: Yes (Hospitalization, Other)
  Sender: FDA-Public Use
  Company Number: 2012PROUSA01203

PATIENT
  Age: 75 Year
  Sex: Male
  Weight: 68 kg

DRUGS (9)
  1. ZOCOR [Concomitant]
  2. PROVENGE [Suspect]
     Dosage: 250 ML, SINGLE, INTRAVENOUS
     Route: 042
     Dates: start: 20120223, end: 20120223
  3. TRICOR /00499301/ (FENOFIBRATE) [Concomitant]
  4. PROVENGE [Suspect]
     Indication: PROSTATE CANCER METASTATIC
     Dosage: 250 ML, SINGLE, INTRAVENOUS
     Route: 042
     Dates: start: 20120206, end: 20120206
  5. VICODIN [Concomitant]
  6. ASPIRIN [Concomitant]
  7. LOVAGA (OMEGA-3 MARINE TRIGLYCERIDES) [Concomitant]
  8. PROVENGE [Suspect]
     Dosage: 250 ML, SINGLE, INTRAVENOUS
     Route: 042
     Dates: start: 20120308, end: 20120308
  9. PRILOSEC [Concomitant]

REACTIONS (20)
  - CYTOKINE RELEASE SYNDROME [None]
  - NAUSEA [None]
  - FLUID OVERLOAD [None]
  - PROSTATE CANCER [None]
  - HYPOXIA [None]
  - EARLY SATIETY [None]
  - ESCHERICHIA URINARY TRACT INFECTION [None]
  - OEDEMA [None]
  - PROCEDURAL COMPLICATION [None]
  - BRAIN NATRIURETIC PEPTIDE INCREASED [None]
  - ATELECTASIS [None]
  - PLEURAL EFFUSION [None]
  - URETERIC OBSTRUCTION [None]
  - LUNG NEOPLASM [None]
  - CARDIOMEGALY [None]
  - DISEASE PROGRESSION [None]
  - COMPUTERISED TOMOGRAM ABNORMAL [None]
  - CONDITION AGGRAVATED [None]
  - HYDRONEPHROSIS [None]
  - DYSURIA [None]
